FAERS Safety Report 5526172-3 (Version None)
Quarter: 2007Q4

REPORT INFORMATION
  Report Type: 
  Country: None (occurrence: None)
  Receive Date: 20071120
  Receipt Date: 20071106
  Transmission Date: 20080405
  Serious: Yes (Hospitalization)
  Sender: FDA-Public Use
  Company Number: 2007AL004781

PATIENT
  Age: 62 Year
  Sex: Male

DRUGS (8)
  1. IBUPROFEN [Suspect]
     Indication: BACK PAIN
     Dosage: PO
     Route: 048
     Dates: start: 20070501, end: 20070603
  2. LEVOTHYROXINE SODIUM [Concomitant]
  3. ACETYLSALICYLIC ACID SRT [Concomitant]
  4. ATORVASTATIN [Concomitant]
  5. METFORMIN HCL [Concomitant]
  6. FELODIPINE [Concomitant]
  7. FLOMAX [Concomitant]
  8. HYDROXYCARBAMIDE [Concomitant]

REACTIONS (6)
  - HEADACHE [None]
  - LEUKOCYTOSIS [None]
  - MENINGITIS [None]
  - MENINGITIS VIRAL [None]
  - PROTEIN TOTAL INCREASED [None]
  - VOMITING [None]
